FAERS Safety Report 16708355 (Version 2)
Quarter: 2019Q3

REPORT INFORMATION
  Report Type: Spontaneous
  Country: US (occurrence: US)
  Receive Date: 20190816
  Receipt Date: 20190829
  Transmission Date: 20191004
  Serious: Yes (Hospitalization)
  Sender: FDA-Public Use
  Company Number: US-CELGENEUS-USA-20190804887

PATIENT
  Age: 69 Year
  Sex: Male

DRUGS (5)
  1. ABRAXANE [Suspect]
     Active Substance: PACLITAXEL
     Indication: NON-SMALL CELL LUNG CANCER STAGE IV
     Dosage: 201 MILLIGRAM
     Route: 042
     Dates: start: 20190702, end: 20190702
  2. DURVALUMAB. [Suspect]
     Active Substance: DURVALUMAB
     Indication: NON-SMALL CELL LUNG CANCER STAGE IV
     Dosage: 1500 MILLIGRAM
     Route: 042
     Dates: start: 20190702, end: 20190702
  3. ABRAXANE [Suspect]
     Active Substance: PACLITAXEL
     Dosage: 201 MILLIGRAM
     Route: 042
     Dates: start: 20190716, end: 20190716
  4. CARBOPLATIN. [Suspect]
     Active Substance: CARBOPLATIN
     Indication: NON-SMALL CELL LUNG CANCER STAGE IV
     Dosage: 577 MILLIGRAM
     Route: 042
     Dates: start: 20190702, end: 20190702
  5. ABRAXANE [Suspect]
     Active Substance: PACLITAXEL
     Dosage: 201 MILLIGRAM
     Route: 042
     Dates: start: 20190723, end: 20190723

REACTIONS (1)
  - Dyspnoea [Recovered/Resolved]

NARRATIVE: CASE EVENT DATE: 20190805
